FAERS Safety Report 4278064-8 (Version None)
Quarter: 2004Q1

REPORT INFORMATION
  Report Type: 
  Country: None (occurrence: None)
  Receive Date: 20040121
  Receipt Date: 20030516
  Transmission Date: 20041129
  Serious: Yes (Other)
  Sender: FDA-Public Use
  Company Number: 2003-05-2390

PATIENT
  Age: 43 Year
  Sex: Male

DRUGS (1)
  1. SUBUTEX [Suspect]
     Indication: DRUG DEPENDENCE
     Dosage: INTRAVENOUS
     Route: 042

REACTIONS (4)
  - ABSCESS [None]
  - HIV TEST POSITIVE [None]
  - MEDICATION ERROR [None]
  - THROMBOPHLEBITIS SUPERFICIAL [None]
